FAERS Safety Report 8775467 (Version 1)
Quarter: 2012Q4

REPORT INFORMATION
  Report Type: Report from Study
  Country: DE (occurrence: DE)
  Receive Date: 20120910
  Receipt Date: 20120910
  Transmission Date: 20130627
  Serious: Yes (Hospitalization)
  Sender: FDA-Public Use
  Company Number: DE-ABBOTT-12P-062-0976822-00

PATIENT
  Age: 44 Year
  Sex: Female
  Weight: 140 kg

DRUGS (3)
  1. HUMIRA [Suspect]
     Indication: RHEUMATOID ARTHRITIS
     Route: 058
     Dates: start: 20120210, end: 20120325
  2. HUMIRA [Suspect]
     Route: 058
  3. CEFUHEXAL [Suspect]
     Indication: ANTIBIOTIC THERAPY

REACTIONS (4)
  - Pyrexia [Recovered/Resolved]
  - Infection [Recovered/Resolved]
  - Swelling face [Recovered/Resolved]
  - Oedema peripheral [Recovered/Resolved]
